FAERS Safety Report 21516769 (Version 2)
Quarter: 2022Q4

REPORT INFORMATION
  Report Type: Report from Study
  Country: US (occurrence: US)
  Receive Date: 20221028
  Receipt Date: 20221122
  Transmission Date: 20230113
  Serious: No
  Sender: FDA-Public Use
  Company Number: US-ABBVIE-4144383

PATIENT
  Age: 28 Year
  Sex: Male

DRUGS (1)
  1. HUMIRA [Suspect]
     Active Substance: ADALIMUMAB
     Indication: Psoriatic arthropathy
     Route: 058
     Dates: end: 202209

REACTIONS (8)
  - Rash [Unknown]
  - Stress [Unknown]
  - Skin exfoliation [Unknown]
  - Skin disorder [Unknown]
  - Pain of skin [Unknown]
  - Skin haemorrhage [Unknown]
  - Skin erosion [Unknown]
  - Skin fissures [Unknown]

NARRATIVE: CASE EVENT DATE: 20220901
